FAERS Safety Report 4804861-3 (Version None)
Quarter: 2005Q4

REPORT INFORMATION
  Report Type: 
  Country: None (occurrence: None)
  Receive Date: 20051017
  Receipt Date: 20050930
  Transmission Date: 20060501
  Serious: Yes (Other)
  Sender: FDA-Public Use
  Company Number: 12600

PATIENT
  Age: 71 Year
  Sex: 0

DRUGS (1)
  1. AMIDARONE [Suspect]

REACTIONS (1)
  - DRUG TOXICITY [None]
